FAERS Safety Report 4676811-4 (Version None)
Quarter: 2005Q2

REPORT INFORMATION
  Report Type: 
  Country: None (occurrence: None)
  Receive Date: 20050527
  Receipt Date: 20050118
  Transmission Date: 20051028
  Serious: Yes (Hospitalization)
  Sender: FDA-Public Use
  Company Number: US-MERCK-0501USA02969

PATIENT
  Sex: Male
  Weight: 82 kg

DRUGS (16)
  1. VIOXX [Suspect]
     Indication: BACK PAIN
     Route: 048
     Dates: start: 20001124, end: 20011204
  2. CANTIL [Concomitant]
     Indication: COLITIS
     Route: 065
  3. BIAXIN [Concomitant]
     Route: 065
  4. FLEXERIL [Concomitant]
     Route: 065
  5. BUSPAR [Concomitant]
     Indication: ANXIETY
     Route: 065
  6. ELAVIL [Concomitant]
     Indication: ANXIETY DISORDER
     Route: 065
  7. ROBAXIN [Concomitant]
     Indication: BACK PAIN
     Route: 065
  8. MOTRIN [Concomitant]
     Route: 065
  9. VICODIN [Concomitant]
     Indication: BACK PAIN
     Route: 065
  10. VIAGRA [Concomitant]
     Route: 065
  11. TALWIN [Concomitant]
     Route: 065
  12. IBUPROFEN [Concomitant]
     Route: 065
  13. PERCOCET [Concomitant]
     Indication: BACK PAIN
     Route: 065
  14. ADVIL [Concomitant]
     Indication: HEADACHE
     Route: 065
  15. TYLENOL (CAPLET) [Concomitant]
     Indication: HEADACHE
     Route: 065
  16. ZYPREXA [Concomitant]
     Route: 065

REACTIONS (14)
  - ADRENAL DISORDER [None]
  - ANXIETY [None]
  - ANXIETY DISORDER [None]
  - DEPRESSION [None]
  - DIZZINESS [None]
  - HAEMATOCHEZIA [None]
  - LOSS OF CONSCIOUSNESS [None]
  - MUSCULOSKELETAL PAIN [None]
  - PAIN [None]
  - POST-TRAUMATIC STRESS DISORDER [None]
  - PULMONARY EMBOLISM [None]
  - RENAL CELL CARCINOMA STAGE UNSPECIFIED [None]
  - RENAL SURGERY [None]
  - THROMBOSIS [None]
